FAERS Safety Report 12739852 (Version 2)
Quarter: 2016Q3

REPORT INFORMATION
  Report Type: Spontaneous
  Country: FR (occurrence: FR)
  Receive Date: 20160913
  Receipt Date: 20160922
  Transmission Date: 20161109
  Serious: Yes (Life-Threatening, Hospitalization)
  Sender: FDA-Public Use
  Company Number: FR-MYLANLABS-2016M1038982

PATIENT

DRUGS (9)
  1. CLOZAPINE. [Suspect]
     Active Substance: CLOZAPINE
     Indication: SCHIZOPHRENIA
     Dosage: 900 MG, QD
     Route: 048
     Dates: start: 1988, end: 20160815
  2. NOZINAN                            /00038601/ [Suspect]
     Active Substance: LEVOMEPROMAZINE
     Dosage: 200 MG, QD
     Route: 048
     Dates: start: 20160722, end: 20160729
  3. IBUPROFEN. [Suspect]
     Active Substance: IBUPROFEN
     Indication: BACK PAIN
     Dosage: UNK
     Route: 048
     Dates: start: 20160805, end: 20160808
  4. NOZINAN                            /00038601/ [Suspect]
     Active Substance: LEVOMEPROMAZINE
     Indication: ANXIETY
     Dosage: UNK
     Route: 048
     Dates: end: 20160722
  5. STILNOX [Concomitant]
     Active Substance: ZOLPIDEM TARTRATE
     Indication: INSOMNIA
     Dosage: 1 DF, QD
     Dates: end: 20160815
  6. CLOZAPINE. [Suspect]
     Active Substance: CLOZAPINE
     Dosage: 50 MG, QD
     Route: 048
     Dates: start: 20160826
  7. VALIUM [Concomitant]
     Active Substance: DIAZEPAM
     Indication: ANXIETY
     Dosage: 40 MG, QD
     Dates: end: 20160815
  8. VOLTAREN [Suspect]
     Active Substance: DICLOFENAC SODIUM
     Indication: BACK PAIN
     Dosage: 2 DF, QD
     Route: 048
     Dates: start: 20160808, end: 20160814
  9. NOZINAN                            /00038601/ [Suspect]
     Active Substance: LEVOMEPROMAZINE
     Dosage: 150 MG, QD
     Route: 048
     Dates: start: 20160729, end: 20160815

REACTIONS (6)
  - Pneumonia aspiration [Unknown]
  - Ileus paralytic [Recovered/Resolved]
  - Renal failure [Recovered/Resolved]
  - Coma [Recovering/Resolving]
  - Respiratory distress [Recovered/Resolved]
  - Neurological decompensation [Unknown]

NARRATIVE: CASE EVENT DATE: 20160814
